FAERS Safety Report 5643673-8 (Version None)
Quarter: 2008Q1

REPORT INFORMATION
  Report Type: 
  Country: None (occurrence: None)
  Receive Date: 20080228
  Receipt Date: 20080219
  Transmission Date: 20080703
  Serious: Yes (Other)
  Sender: FDA-Public Use
  Company Number: US-PFIZER INC-2008014759

PATIENT
  Sex: Female
  Weight: 59 kg

DRUGS (7)
  1. DETROL LA [Suspect]
     Indication: HYPERTONIC BLADDER
  2. ALL OTHER THERAPEUTIC PRODUCTS [Concomitant]
  3. PREDNISONE TAB [Concomitant]
  4. AMANTADINE HCL [Concomitant]
  5. METHOTREXATE [Concomitant]
  6. AMBIEN [Concomitant]
     Indication: SLEEP DISORDER
  7. TRAZODONE HCL [Concomitant]

REACTIONS (1)
  - BALANCE DISORDER [None]
